FAERS Safety Report 8577733-9 (Version None)
Quarter: 2012Q3

REPORT INFORMATION
  Report Type: 
  Country: None (occurrence: None)
  Receive Date: 20120808
  Receipt Date: 20120731
  Transmission Date: 20120928
  Serious: Yes (Death)
  Sender: FDA-Public Use
  Company Number: US-BRISTOL-MYERS SQUIBB COMPANY-16827974

PATIENT

DRUGS (1)
  1. YERVOY [Suspect]
     Dosage: EXP DATE: JUN2014, STR: 50MG/ML, 200MG/40ML(NDC:00003-2328-22)

REACTIONS (1)
  - DEATH [None]
